FAERS Safety Report 7292750-7 (Version None)
Quarter: 2011Q1

REPORT INFORMATION
  Report Type: 
  Country: None (occurrence: None)
  Receive Date: 20110215
  Receipt Date: 20110106
  Transmission Date: 20110831
  Serious: Yes (Hospitalization)
  Sender: FDA-Public Use
  Company Number: US-BAYER-201026267NA

PATIENT
  Sex: Female
  Weight: 85 kg

DRUGS (7)
  1. MACROBID [Concomitant]
     Dosage: TREATMENT: WHOLE LIFE
     Route: 065
  2. MULTI-VITAMIN [Concomitant]
  3. CLARITIN [Concomitant]
     Route: 065
  4. OCELLA [Suspect]
     Indication: CONTRACEPTION
     Route: 048
     Dates: start: 20080101, end: 20091001
  5. YAZ [Suspect]
     Indication: CONTRACEPTION
     Route: 048
     Dates: start: 20060101, end: 20080101
  6. IBUPROFEN [Concomitant]
     Route: 065
  7. HYOSCYAMINE [Concomitant]
     Route: 065

REACTIONS (7)
  - ABDOMINAL PAIN [None]
  - HEPATOBILIARY SCAN ABNORMAL [None]
  - ABDOMINAL PAIN UPPER [None]
  - INJURY [None]
  - NAUSEA [None]
  - CHOLECYSTITIS CHRONIC [None]
  - BILIARY DYSKINESIA [None]
